FAERS Safety Report 4399771-2 (Version None)
Quarter: 2004Q3

REPORT INFORMATION
  Report Type: 
  Country: None (occurrence: None)
  Receive Date: 20040714
  Receipt Date: 20040708
  Transmission Date: 20050211
  Serious: Yes (Hospitalization)
  Sender: FDA-Public Use
  Company Number: 04P-062-0264425-00

PATIENT
  Age: 39 Year
  Sex: Female

DRUGS (9)
  1. VALPROIC ACID [Suspect]
     Indication: CONVULSION
     Dosage: UNK
     Route: 065
  2. PRIMIDONE [Suspect]
     Indication: CONVULSION
     Dosage: UNK
     Route: 065
  3. DIAZEPAM [Concomitant]
  4. CLOBAZAM [Concomitant]
  5. GABAPENTIN [Concomitant]
  6. TOPIRMATE [Concomitant]
  7. PHENYTOIN [Concomitant]
  8. CLONAZEPAM [Concomitant]
  9. LEVETIRACETAM [Concomitant]

REACTIONS (7)
  - ABDOMINAL PAIN [None]
  - CHROMATURIA [None]
  - CONDITION AGGRAVATED [None]
  - COPROPORPHYRINOGEN INCREASED [None]
  - GRAND MAL CONVULSION [None]
  - PORPHYRIA [None]
  - URINE DELTA AMINOLEVULINATE [None]
